FAERS Safety Report 16584768 (Version 1)
Quarter: 2019Q3

REPORT INFORMATION
  Report Type: Spontaneous
  Country: CH (occurrence: CH)
  Receive Date: 20190717
  Receipt Date: 20190717
  Transmission Date: 20191004
  Serious: Yes (Other)
  Sender: FDA-Public Use
  Company Number: CH-ROCHE-2354209

PATIENT
  Sex: Male

DRUGS (2)
  1. MABTHERA [Suspect]
     Active Substance: RITUXIMAB
     Route: 065
     Dates: start: 20190703
  2. MABTHERA [Suspect]
     Active Substance: RITUXIMAB
     Indication: THROMBOCYTOPENIA
     Route: 065
     Dates: start: 20190626

REACTIONS (4)
  - Blood disorder [Unknown]
  - Intentional product use issue [Unknown]
  - Petechiae [Unknown]
  - Off label use [Unknown]
